FAERS Safety Report 8022757-3 (Version None)
Quarter: 2012Q1

REPORT INFORMATION
  Report Type: 
  Country: None (occurrence: None)
  Receive Date: 20120104
  Receipt Date: 20111220
  Transmission Date: 20120608
  Serious: Yes (Death)
  Sender: FDA-Public Use
  Company Number: JP-ROCHE-1026612

PATIENT

DRUGS (2)
  1. TAMIFLU [Suspect]
     Indication: H1N1 INFLUENZA
  2. ZANAMIVIR [Suspect]
     Indication: H1N1 INFLUENZA

REACTIONS (1)
  - DEATH [None]
